FAERS Safety Report 4816173-2 (Version None)
Quarter: 2005Q4

REPORT INFORMATION
  Report Type: 
  Country: None (occurrence: None)
  Receive Date: 20051026
  Receipt Date: 20051012
  Transmission Date: 20060501
  Serious: Yes (Hospitalization)
  Sender: FDA-Public Use
  Company Number: FR_051007309

PATIENT
  Age: 55 Year
  Sex: Female

DRUGS (1)
  1. EVISTA [Suspect]
     Dosage: 60 MG DAY
     Dates: start: 20050701

REACTIONS (3)
  - CEREBROVASCULAR ACCIDENT [None]
  - FACIAL PALSY [None]
  - MIGRAINE [None]
